FAERS Safety Report 6865209-6 (Version None)
Quarter: 2010Q3

REPORT INFORMATION
  Report Type: 
  Country: None (occurrence: None)
  Receive Date: 20100721
  Receipt Date: 20080516
  Transmission Date: 20110219
  Serious: No
  Sender: FDA-Public Use
  Company Number: US-PFIZER INC-2008033469

PATIENT
  Age: 55 Year
  Sex: Female
  Weight: 72.7 kg

DRUGS (10)
  1. CHANTIX [Suspect]
     Indication: SMOKING CESSATION THERAPY
     Route: 048
     Dates: start: 20080405
  2. PROZAC [Concomitant]
  3. LOVAZA [Concomitant]
  4. CALCIUM [Concomitant]
  5. ACETYLSALICYLIC ACID [Concomitant]
  6. MULTI-VITAMINS [Concomitant]
  7. HERBAL PREPARATION [Concomitant]
  8. VITAMIN C [Concomitant]
  9. AMBIEN [Concomitant]
  10. XANAX [Concomitant]

REACTIONS (4)
  - INCORRECT DOSE ADMINISTERED [None]
  - NAUSEA [None]
  - POOR QUALITY SLEEP [None]
  - WEIGHT DECREASED [None]
